FAERS Safety Report 5169893-7 (Version None)
Quarter: 2006Q4

REPORT INFORMATION
  Report Type: 
  Country: None (occurrence: None)
  Receive Date: 20061201
  Receipt Date: 20061024
  Transmission Date: 20070319
  Serious: Yes (Death)
  Sender: FDA-Public Use
  Company Number: AND_AAPCC_2006_0755

PATIENT
  Age: 38 Year

DRUGS (3)
  1. DILTIAZEM [Suspect]
     Dosage: DF, UNK; PO
     Route: 048
  2. FLUOXETINE [Suspect]
     Dosage: DF, UNK; PO
     Route: 048
  3. METROPOLOL [Suspect]
     Dosage: DF, UNK; PO
     Route: 048

REACTIONS (1)
  - COMPLETED SUICIDE [None]
